FAERS Safety Report 9670769 (Version 2)
Quarter: 2014Q1

REPORT INFORMATION
  Report Type: Spontaneous
  Country: US (occurrence: US)
  Receive Date: 20131106
  Receipt Date: 20140225
  Transmission Date: 20141002
  Serious: Yes (Death)
  Sender: FDA-Public Use
  Company Number: US-SA-2013SA112436

PATIENT
  Age: 45 Year
  Sex: Male
  Weight: 54 kg

DRUGS (3)
  1. LANTUS [Suspect]
     Indication: DIABETES MELLITUS
     Dosage: 20 UNITS AT 9 AM AND 11 UNITS AT 9 PM.
     Route: 051
     Dates: start: 2011, end: 201309
  2. NOVOLOG [Concomitant]
     Indication: DIABETES MELLITUS
     Dosage: DOSE:10 UNIT(S)
     Route: 058
  3. VANCOMYCIN [Concomitant]

REACTIONS (2)
  - Death [Fatal]
  - Drug dose omission [Unknown]
